FAERS Safety Report 5267511-0 (Version None)
Quarter: 2007Q1

REPORT INFORMATION
  Report Type: 
  Country: None (occurrence: None)
  Receive Date: 20061213
  Receipt Date: 20031105
  Transmission Date: 20070707
  Serious: No
  Sender: FDA-Public Use
  Company Number: 2003UW14641

PATIENT
  Age: 56 Year
  Sex: Female
  Weight: 60.782 kg

DRUGS (3)
  1. TAMOXIFEN [Suspect]
     Indication: BREAST CANCER
     Dosage: 1 MG PO
     Route: 048
  2. FOSAMAX [Concomitant]
  3. CALCIUM [Concomitant]

REACTIONS (1)
  - BREAST CANCER RECURRENT [None]
